FAERS Safety Report 19162789 (Version 1)
Quarter: 2021Q2

REPORT INFORMATION
  Report Type: Spontaneous
  Country: US (occurrence: US)
  Receive Date: 20210421
  Receipt Date: 20210421
  Transmission Date: 20210717
  Serious: No
  Sender: FDA-Public Use
  Company Number: US-LAURUS-001068

PATIENT
  Age: 30 Year
  Sex: Female

DRUGS (5)
  1. ATAZANAVIR. [Suspect]
     Active Substance: ATAZANAVIR
     Indication: HIV INFECTION
     Dosage: COURSE?2: TOTAL DOSE 400 MG/DAY, ORAL.
     Route: 048
     Dates: start: 20200805
  2. EMTRICITABINE AND TENOFOVIR DISOPROXIL FUMARATE [Suspect]
     Active Substance: EMTRICITABINE\TENOFOVIR DISOPROXIL FUMARATE
     Indication: HIV INFECTION
     Dosage: COURSE?1: 1 TAB/CAPS, ORAL.
     Route: 048
     Dates: start: 20200604
  3. RETROVIR [Suspect]
     Active Substance: ZIDOVUDINE
     Indication: HIV INFECTION
     Dosage: COURSE?1: 2 MG/KG/HR, IV AND COURSE?2: 1 MG/KG/HR, IV.
     Route: 042
     Dates: start: 20201002, end: 20201003
  4. ATAZANAVIR. [Suspect]
     Active Substance: ATAZANAVIR
     Indication: HIV INFECTION
     Dosage: COURSE?1: 1 TAB/CAPS, ORAL.
     Route: 048
     Dates: start: 20200604, end: 20200805
  5. RITONAVIR. [Suspect]
     Active Substance: RITONAVIR
     Indication: HIV INFECTION
     Dosage: COURSE?1: 1 TAB/CAPS, ORAL.
     Route: 048
     Dates: start: 20200604

REACTIONS (1)
  - Exposure during pregnancy [Unknown]
